FAERS Safety Report 7766083-6 (Version None)
Quarter: 2011Q3

REPORT INFORMATION
  Report Type: 
  Country: None (occurrence: None)
  Receive Date: 20110921
  Receipt Date: 20110909
  Transmission Date: 20111222
  Serious: Yes (Other)
  Sender: FDA-Public Use
  Company Number: PHEH2011US00445

PATIENT
  Sex: Female

DRUGS (14)
  1. INDERAL [Concomitant]
     Dosage: 10 MG, TID
     Route: 048
  2. CLARITIN [Concomitant]
  3. VIOXX [Concomitant]
     Dosage: 25 MG, QD
  4. COLACE [Concomitant]
     Dosage: 100 MG, QD
     Route: 048
  5. OXYCONTIN [Concomitant]
     Dosage: 10 MG, Q12H
  6. PREDNISONE [Concomitant]
  7. FENTANYL [Concomitant]
  8. AMOXICILLIN [Concomitant]
  9. ZOMETA [Suspect]
     Indication: MULTIPLE MYELOMA
  10. THALIDOMIDE [Concomitant]
  11. VICODIN [Concomitant]
  12. PROTONIX [Concomitant]
     Dosage: 40 MG, QD
     Route: 048
  13. COMPAZINE [Concomitant]
     Dosage: 10 MG, Q6H PRN
  14. XANAX [Concomitant]

REACTIONS (29)
  - OSTEOPOROSIS [None]
  - MIGRAINE [None]
  - OSTEONECROSIS OF JAW [None]
  - ANXIETY [None]
  - BACK PAIN [None]
  - DIVERTICULUM [None]
  - GASTRITIS [None]
  - ARRHYTHMIA [None]
  - INFECTION [None]
  - IRON DEFICIENCY ANAEMIA [None]
  - PARAESTHESIA [None]
  - ARTHRALGIA [None]
  - PATHOLOGICAL FRACTURE [None]
  - INJURY [None]
  - PAIN [None]
  - PHYSICAL DISABILITY [None]
  - PAIN IN EXTREMITY [None]
  - DEFORMITY [None]
  - CARDIOMEGALY [None]
  - TOBACCO ABUSE [None]
  - GASTROOESOPHAGEAL REFLUX DISEASE [None]
  - OSTEOLYSIS [None]
  - MITRAL VALVE PROLAPSE [None]
  - FALL [None]
  - EAR INFECTION [None]
  - OEDEMA [None]
  - ABDOMINAL PAIN [None]
  - ENDOMETRIOSIS [None]
  - SINUS DISORDER [None]
